FAERS Safety Report 17325777 (Version 1)
Quarter: 2020Q1

REPORT INFORMATION
  Report Type: Spontaneous
  Country: FR (occurrence: FR)
  Receive Date: 20200127
  Receipt Date: 20200127
  Transmission Date: 20200409
  Serious: Yes (Death, Life-Threatening, Other)
  Sender: FDA-Public Use
  Company Number: FR-MYLANLABS-2020M1008390

PATIENT
  Age: 43 Year
  Sex: Male

DRUGS (6)
  1. SERETIDE [Concomitant]
     Active Substance: FLUTICASONE PROPIONATE\SALMETEROL XINAFOATE
     Indication: PRODUCT USED FOR UNKNOWN INDICATION
     Dosage: 2 DOSAGE FORM, QD
     Route: 055
     Dates: start: 20191014
  2. ISOPTINE [Suspect]
     Active Substance: VERAPAMIL HYDROCHLORIDE
     Indication: PRODUCT USED FOR UNKNOWN INDICATION
     Dosage: 360 MILLIGRAM, QD
     Route: 048
  3. SKENAN [Interacting]
     Active Substance: MORPHINE SULFATE
     Indication: GAIT DISTURBANCE
     Dosage: 20 MILLIGRAM, QD
     Route: 048
     Dates: start: 20191014
  4. VALIUM [Interacting]
     Active Substance: DIAZEPAM
     Indication: ANXIETY
     Dosage: 10 MILLIGRAM, QD
     Route: 048
  5. CODOLIPRANE [Interacting]
     Active Substance: ACETAMINOPHEN\CODEINE PHOSPHATE
     Indication: PRODUCT USED FOR UNKNOWN INDICATION
     Dosage: UNK
     Route: 048
     Dates: start: 20191025, end: 20191025
  6. METHADONE AP HP [Interacting]
     Active Substance: METHADONE HYDROCHLORIDE
     Indication: PRODUCT USED FOR UNKNOWN INDICATION
     Dosage: 2 DOSAGE FORM, QD
     Route: 048
     Dates: start: 20191022

REACTIONS (5)
  - Drug interaction [Unknown]
  - Drug dependence [Unknown]
  - Cardio-respiratory arrest [Fatal]
  - Coma [Fatal]
  - Bradypnoea [Fatal]

NARRATIVE: CASE EVENT DATE: 20191026
